FAERS Safety Report 9902787 (Version 1)
Quarter: 2014Q1

REPORT INFORMATION
  Report Type: Report from Study
  Country: US (occurrence: US)
  Receive Date: 20140217
  Receipt Date: 20140217
  Transmission Date: 20141002
  Serious: Yes (Hospitalization)
  Sender: FDA-Public Use
  Company Number: US-TAKEDA-2014TUS000998

PATIENT
  Age: 77 Year
  Sex: Male
  Weight: 81.4 kg

DRUGS (3)
  1. BLINDED PIOGLITAZONE [Suspect]
     Dosage: UNK
     Dates: start: 20131101, end: 20140115
  2. BLINDED PLACEBO [Suspect]
     Dosage: UNK
     Dates: start: 20131101, end: 20140115
  3. ZOCOR [Concomitant]
     Indication: HYPERLIPIDAEMIA
     Dosage: 40 MG,ONCE DAILY
     Route: 048
     Dates: start: 201208

REACTIONS (1)
  - Ankle fracture [Recovering/Resolving]
